FAERS Safety Report 21326997 (Version 1)
Quarter: 2022Q3

REPORT INFORMATION
  Report Type: Spontaneous
  Country: US (occurrence: None)
  Receive Date: 20220912
  Receipt Date: 20220912
  Transmission Date: 20221027
  Serious: Yes (Hospitalization)
  Sender: FDA-Public Use
  Company Number: None

PATIENT
  Sex: Female

DRUGS (9)
  1. REMICADE [Suspect]
     Active Substance: INFLIXIMAB
     Indication: Sarcoidosis
     Dosage: FREQUENCY : MONTHLY;?
     Route: 042
     Dates: start: 20201204
  2. AZELASTINE SPR [Concomitant]
  3. BUPROPION TAB [Concomitant]
  4. DESOXIMETAS OIN [Concomitant]
  5. GABAPENTIN [Concomitant]
     Active Substance: GABAPENTIN
  6. LEFLUNOMIDE [Concomitant]
     Active Substance: LEFLUNOMIDE
  7. LOTEPREDNOL SUS [Concomitant]
  8. METOPROL TAR TAB [Concomitant]
  9. TIMOLOL MAL SOL OP [Concomitant]

REACTIONS (1)
  - Surgery [None]
